FAERS Safety Report 5297339-7 (Version None)
Quarter: 2007Q2

REPORT INFORMATION
  Report Type: 
  Country: None (occurrence: None)
  Receive Date: 20070416
  Receipt Date: 20070123
  Transmission Date: 20071010
  Serious: Yes (Other)
  Sender: FDA-Public Use
  Company Number: US-NOVOPROD-258130

PATIENT
  Sex: Female
  Weight: 68.2 kg

DRUGS (2)
  1. NORDITROPIN [Suspect]
     Indication: GROWTH HORMONE DEFICIENCY
     Dosage: 2 MG, QD
     Route: 058
     Dates: start: 20050319, end: 20060621
  2. NORDITROPIN [Suspect]
     Dosage: 3.4 MG, QD
     Route: 058
     Dates: start: 20060622, end: 20061026

REACTIONS (1)
  - MACROGENIA [None]
